FAERS Safety Report 7431908-0 (Version None)
Quarter: 2011Q2

REPORT INFORMATION
  Report Type: 
  Country: None (occurrence: None)
  Receive Date: 20110422
  Receipt Date: 20110418
  Transmission Date: 20111010
  Serious: Yes (Other)
  Sender: FDA-Public Use
  Company Number: US-PFIZER INC-2011085048

PATIENT
  Sex: Male
  Weight: 133.79 kg

DRUGS (7)
  1. GEODON [Suspect]
     Indication: BIPOLAR II DISORDER
     Dosage: 120 MG, DAILY
     Route: 048
     Dates: start: 20110123, end: 20110101
  2. GEODON [Suspect]
     Dosage: 80 MG, 2X/DAY
     Route: 048
     Dates: start: 20110101, end: 20110301
  3. GEODON [Suspect]
     Dosage: 80 MG, 2X/DAY
     Route: 048
     Dates: start: 20110401, end: 20110415
  4. GEODON [Suspect]
     Dosage: 40 MG IN THE MORNING AND 120 MG AT NIGHT
     Route: 048
     Dates: start: 20110301, end: 20110401
  5. PRISTIQ [Suspect]
     Dosage: 100 MG, 1X/DAY
     Route: 048
     Dates: start: 20110401
  6. GEODON [Suspect]
     Dosage: 160 MG, 1X/DAY
     Dates: start: 20110416
  7. PRISTIQ [Suspect]
     Indication: BIPOLAR II DISORDER
     Dosage: 50 MG, DAILY
     Route: 048
     Dates: start: 20110123, end: 20110401

REACTIONS (6)
  - SLEEP DISORDER [None]
  - FATIGUE [None]
  - ASTHENIA [None]
  - DRUG INEFFECTIVE [None]
  - IRRITABILITY [None]
  - WITHDRAWAL SYNDROME [None]
